FAERS Safety Report 8195474-7 (Version None)
Quarter: 2012Q1

REPORT INFORMATION
  Report Type: 
  Country: None (occurrence: None)
  Receive Date: 20120308
  Receipt Date: 20120301
  Transmission Date: 20120608
  Serious: Yes (Other)
  Sender: FDA-Public Use
  Company Number: PHEH2012US004900

PATIENT

DRUGS (3)
  1. STALEVO 100 [Suspect]
     Dosage: 150 MG, 5 TO 6 TIMES IN DAY
     Route: 048
  2. STALEVO 100 [Suspect]
     Dosage: 150 MG, ONCE A DAY
     Route: 048
     Dates: start: 20110531
  3. STALEVO 100 [Suspect]
     Dosage: 150

REACTIONS (1)
  - PARKINSON'S DISEASE [None]
